FAERS Safety Report 20056034 (Version 1)
Quarter: 2021Q4

REPORT INFORMATION
  Report Type: Spontaneous
  Country: CA (occurrence: CA)
  Receive Date: 20211111
  Receipt Date: 20211111
  Transmission Date: 20220303
  Serious: Yes (Hospitalization, Other)
  Sender: FDA-Public Use
  Company Number: CA-NOVOPROD-863650

PATIENT
  Age: 46 Year
  Sex: Female

DRUGS (1)
  1. OZEMPIC [Suspect]
     Active Substance: SEMAGLUTIDE
     Indication: Product used for unknown indication
     Dosage: UNK
     Route: 065

REACTIONS (16)
  - Loss of consciousness [Unknown]
  - Limb discomfort [Unknown]
  - Dyspnoea [Unknown]
  - Palpitations [Unknown]
  - Arrhythmia [Unknown]
  - Dyspepsia [Recovered/Resolved]
  - Blood glucose increased [Unknown]
  - Dizziness [Unknown]
  - Hypotension [Recovered/Resolved]
  - Back pain [Recovered/Resolved]
  - Feeling hot [Unknown]
  - Fall [Unknown]
  - Malaise [Unknown]
  - Decreased appetite [Recovered/Resolved]
  - Nausea [Recovered/Resolved]
  - Constipation [Unknown]

NARRATIVE: CASE EVENT DATE: 20210809
